FAERS Safety Report 23962492 (Version 1)
Quarter: 2024Q2

REPORT INFORMATION
  Report Type: Spontaneous
  Country: US (occurrence: US)
  Receive Date: 20240611
  Receipt Date: 20240611
  Transmission Date: 20240716
  Serious: No
  Sender: FDA-Public Use
  Company Number: US-PFIZER INC-202400190597

PATIENT
  Age: 25 Year
  Sex: Female

DRUGS (5)
  1. PAXLOVID [Suspect]
     Active Substance: NIRMATRELVIR\RITONAVIR
     Indication: COVID-19 treatment
     Dosage: UNK
     Dates: start: 20240529, end: 20240603
  2. LINZESS [Concomitant]
     Active Substance: LINACLOTIDE
  3. DULCOLAX STOOL SOFTENER [Concomitant]
     Active Substance: DOCUSATE SODIUM
  4. LORATADINE [Concomitant]
     Active Substance: LORATADINE
  5. TYLENOL EXTRA STRENGTH [Concomitant]
     Active Substance: ACETAMINOPHEN

REACTIONS (11)
  - Cough [Unknown]
  - Rhinorrhoea [Unknown]
  - Pyrexia [Unknown]
  - Fatigue [Unknown]
  - Chills [Unknown]
  - Oropharyngeal discomfort [Unknown]
  - Back pain [Unknown]
  - Respiratory tract irritation [Unknown]
  - Pain [Unknown]
  - Decreased appetite [Unknown]
  - Brain fog [Unknown]

NARRATIVE: CASE EVENT DATE: 20240606
